FAERS Safety Report 8037346-4 (Version None)
Quarter: 2012Q1

REPORT INFORMATION
  Report Type: 
  Country: None (occurrence: None)
  Receive Date: 20120111
  Receipt Date: 20120104
  Transmission Date: 20120608
  Serious: Yes (Other)
  Sender: FDA-Public Use
  Company Number: US-ASTRAZENECA-2012SE00748

PATIENT

DRUGS (2)
  1. SEROQUEL [Suspect]
     Route: 048
  2. PARNATE [Interacting]
     Route: 065

REACTIONS (3)
  - FEELING ABNORMAL [None]
  - DRUG INTERACTION [None]
  - SEROTONIN SYNDROME [None]
